FAERS Safety Report 15196512 (Version 1)
Quarter: 2018Q3

REPORT INFORMATION
  Report Type: Report from Study
  Country: None (occurrence: US)
  Receive Date: 20180725
  Receipt Date: 20180725
  Transmission Date: 20181010
  Serious: Yes (Other)
  Sender: FDA-Public Use
  Company Number: US-ABBVIE-18K-163-2426602-00

PATIENT
  Sex: Female

DRUGS (1)
  1. HUMIRA [Suspect]
     Active Substance: ADALIMUMAB
     Indication: RHEUMATOID ARTHRITIS
     Route: 058
     Dates: start: 20171105

REACTIONS (21)
  - Spinal cord neoplasm [Unknown]
  - Ankylosing spondylitis [Unknown]
  - Chest wall mass [Unknown]
  - Chronic obstructive pulmonary disease [Unknown]
  - Interstitial lung disease [Unknown]
  - Hyperchlorhydria [Unknown]
  - Ulcer [Unknown]
  - Neuropathy peripheral [Unknown]
  - Diverticulitis [Unknown]
  - Intracranial mass [Unknown]
  - Muscular weakness [Unknown]
  - Multiple sclerosis [Unknown]
  - Haematemesis [Unknown]
  - Diabetes mellitus [Unknown]
  - Gastrooesophageal reflux disease [Unknown]
  - Pruritus [Unknown]
  - Pain in extremity [Unknown]
  - Spinal fracture [Unknown]
  - Burning sensation [Unknown]
  - Asthma [Unknown]
  - Sarcoidosis [Unknown]

NARRATIVE: CASE EVENT DATE: 201807
